FAERS Safety Report 7541248-7 (Version None)
Quarter: 2011Q2

REPORT INFORMATION
  Report Type: 
  Country: None (occurrence: None)
  Receive Date: 20110610
  Receipt Date: 20110526
  Transmission Date: 20111010
  Serious: Yes (Other)
  Sender: FDA-Public Use
  Company Number: CA-GENENTECH-314952

PATIENT
  Sex: Male
  Weight: 80 kg

DRUGS (4)
  1. XOLAIR [Suspect]
     Dosage: 375 MG, Q2W
     Dates: start: 20091028
  2. XOLAIR [Suspect]
     Dosage: 375 MG, Q2W
     Route: 058
     Dates: start: 20100414
  3. XOLAIR [Suspect]
     Indication: ASTHMA
     Dosage: 375 MG, Q2W
     Route: 058
     Dates: start: 20080806
  4. XOLAIR [Suspect]
     Dosage: 375 MG, Q2W
     Dates: start: 20091125

REACTIONS (6)
  - WHEEZING [None]
  - ASTHMA [None]
  - INFLUENZA LIKE ILLNESS [None]
  - SINUS DISORDER [None]
  - CHEST DISCOMFORT [None]
  - NASOPHARYNGITIS [None]
